FAERS Safety Report 16379397 (Version 1)
Quarter: 2019Q2

REPORT INFORMATION
  Report Type: Report from Study
  Country: CA (occurrence: CA)
  Receive Date: 20190531
  Receipt Date: 20190531
  Transmission Date: 20190711
  Serious: Yes (Hospitalization)
  Sender: FDA-Public Use
  Company Number: CA-ASTELLAS-2019US022774

PATIENT
  Age: 46 Year
  Sex: Male

DRUGS (91)
  1. CICLOSPORIN [Suspect]
     Active Substance: CYCLOSPORINE
     Route: 065
     Dates: start: 20040901, end: 20040903
  2. METHYLPREDNISOLONE SODIUM SUCCINATE. [Suspect]
     Active Substance: METHYLPREDNISOLONE SODIUM SUCCINATE
     Route: 065
     Dates: start: 20040829, end: 20040829
  3. METHYLPREDNISOLONE SODIUM SUCCINATE. [Suspect]
     Active Substance: METHYLPREDNISOLONE SODIUM SUCCINATE
     Route: 065
     Dates: start: 20040903
  4. METHYLPREDNISOLONE SODIUM SUCCINATE. [Suspect]
     Active Substance: METHYLPREDNISOLONE SODIUM SUCCINATE
     Route: 065
     Dates: start: 20040914, end: 20040914
  5. METHYLPREDNISOLONE SODIUM SUCCINATE. [Suspect]
     Active Substance: METHYLPREDNISOLONE SODIUM SUCCINATE
     Route: 065
     Dates: start: 20040917, end: 20040918
  6. MYCOPHENOLATE MOFETIL. [Suspect]
     Active Substance: MYCOPHENOLATE MOFETIL
     Route: 065
     Dates: start: 20040902
  7. MYCOPHENOLATE MOFETIL. [Suspect]
     Active Substance: MYCOPHENOLATE MOFETIL
     Route: 065
     Dates: start: 20040828
  8. MYCOPHENOLATE MOFETIL. [Suspect]
     Active Substance: MYCOPHENOLATE MOFETIL
     Route: 065
     Dates: start: 20041223
  9. MYCOPHENOLATE MOFETIL. [Suspect]
     Active Substance: MYCOPHENOLATE MOFETIL
     Route: 065
     Dates: start: 20050107
  10. PREDNISONE. [Suspect]
     Active Substance: PREDNISONE
     Route: 048
     Dates: start: 20040907
  11. CLONIDINE. [Concomitant]
     Active Substance: CLONIDINE
     Indication: PRODUCT USED FOR UNKNOWN INDICATION
     Dosage: 0.1 MG, UNKNOWN FREQ.
     Route: 048
     Dates: start: 20040829, end: 20040925
  12. CLONIDINE. [Concomitant]
     Active Substance: CLONIDINE
     Dosage: 0.05 MG, AS NEEDED
     Route: 048
     Dates: start: 20041130, end: 20041224
  13. CYANOCOBALAMIN. [Concomitant]
     Active Substance: CYANOCOBALAMIN
     Indication: PRODUCT USED FOR UNKNOWN INDICATION
     Route: 058
     Dates: start: 20041004
  14. FUROSEMIDE. [Concomitant]
     Active Substance: FUROSEMIDE
     Route: 042
     Dates: start: 20040829
  15. SEPTRA [Concomitant]
     Active Substance: SULFAMETHOXAZOLE\TRIMETHOPRIM
     Indication: INFECTION PROPHYLAXIS
     Route: 048
     Dates: start: 20040902, end: 20041129
  16. MYCOPHENOLATE MOFETIL. [Suspect]
     Active Substance: MYCOPHENOLATE MOFETIL
     Route: 065
     Dates: start: 20040906, end: 20040906
  17. MYCOPHENOLATE MOFETIL. [Suspect]
     Active Substance: MYCOPHENOLATE MOFETIL
     Route: 065
     Dates: start: 20040830, end: 20040830
  18. MYCOPHENOLATE MOFETIL. [Suspect]
     Active Substance: MYCOPHENOLATE MOFETIL
     Route: 065
     Dates: start: 20040907
  19. MYCOPHENOLATE MOFETIL. [Suspect]
     Active Substance: MYCOPHENOLATE MOFETIL
     Route: 065
     Dates: start: 20041129
  20. MYCOPHENOLATE MOFETIL. [Suspect]
     Active Substance: MYCOPHENOLATE MOFETIL
     Route: 065
     Dates: start: 20050128
  21. ACETAMINOPHEN. [Concomitant]
     Active Substance: ACETAMINOPHEN
     Route: 048
     Dates: start: 20061201, end: 20061216
  22. AMLODIPINE BESILATE [Concomitant]
     Active Substance: AMLODIPINE BESYLATE
     Indication: PRODUCT USED FOR UNKNOWN INDICATION
     Route: 048
     Dates: start: 20040916, end: 20041101
  23. AMLODIPINE BESILATE [Concomitant]
     Active Substance: AMLODIPINE BESYLATE
     Route: 048
     Dates: start: 20041216
  24. AMLODIPINE BESILATE [Concomitant]
     Active Substance: AMLODIPINE BESYLATE
     Route: 048
     Dates: start: 20050125
  25. CICLOSPORIN [Suspect]
     Active Substance: CYCLOSPORINE
     Route: 065
     Dates: start: 20040904, end: 20040904
  26. CICLOSPORIN [Suspect]
     Active Substance: CYCLOSPORINE
     Route: 065
     Dates: start: 20040827, end: 20040831
  27. MYCOPHENOLATE MOFETIL. [Suspect]
     Active Substance: MYCOPHENOLATE MOFETIL
     Route: 065
     Dates: start: 20040831, end: 20040831
  28. MYCOPHENOLATE MOFETIL. [Suspect]
     Active Substance: MYCOPHENOLATE MOFETIL
     Route: 065
     Dates: start: 20040916, end: 20040916
  29. MYCOPHENOLATE MOFETIL. [Suspect]
     Active Substance: MYCOPHENOLATE MOFETIL
     Route: 065
     Dates: start: 20040917, end: 20040917
  30. PREDNISONE. [Suspect]
     Active Substance: PREDNISONE
     Route: 048
     Dates: start: 20050315
  31. SIROLIMUS. [Suspect]
     Active Substance: SIROLIMUS
     Indication: PROPHYLAXIS AGAINST TRANSPLANT REJECTION
     Dosage: UNK UNK, UNKNOWN FREQ.
     Route: 065
  32. ACEBUTOLOL HYDROCHLORIDE. [Concomitant]
     Active Substance: ACEBUTOLOL HYDROCHLORIDE
     Indication: HYPERTENSION
     Route: 048
     Dates: start: 20040831
  33. ACETAMINOPHEN. [Concomitant]
     Active Substance: ACETAMINOPHEN
     Indication: PRODUCT USED FOR UNKNOWN INDICATION
     Route: 048
     Dates: start: 20040902, end: 20040906
  34. AMLODIPINE BESILATE [Concomitant]
     Active Substance: AMLODIPINE BESYLATE
     Route: 048
     Dates: start: 20050315
  35. ENALAPRIL MALEATE. [Concomitant]
     Active Substance: ENALAPRIL MALEATE
     Indication: HYPERTENSION
     Route: 048
     Dates: start: 20041102, end: 20041213
  36. ENALAPRIL MALEATE. [Concomitant]
     Active Substance: ENALAPRIL MALEATE
     Route: 048
     Dates: start: 20050314
  37. CICLOSPORIN [Suspect]
     Active Substance: CYCLOSPORINE
     Route: 065
     Dates: start: 20041005
  38. CICLOSPORIN [Suspect]
     Active Substance: CYCLOSPORINE
     Route: 065
     Dates: start: 20050315
  39. CICLOSPORIN [Suspect]
     Active Substance: CYCLOSPORINE
     Route: 065
     Dates: start: 20060601
  40. CICLOSPORIN [Suspect]
     Active Substance: CYCLOSPORINE
     Route: 065
     Dates: start: 20070306
  41. MYCOPHENOLATE MOFETIL. [Suspect]
     Active Substance: MYCOPHENOLATE MOFETIL
     Route: 065
     Dates: start: 20040915, end: 20040915
  42. MYCOPHENOLATE MOFETIL. [Suspect]
     Active Substance: MYCOPHENOLATE MOFETIL
     Route: 065
     Dates: start: 20040918, end: 20040918
  43. PREDNISONE. [Suspect]
     Active Substance: PREDNISONE
     Route: 048
     Dates: start: 20041214
  44. DIMENHYDRINATE. [Concomitant]
     Active Substance: DIMENHYDRINATE
     Indication: PRODUCT USED FOR UNKNOWN INDICATION
     Route: 042
     Dates: start: 20040830, end: 20040830
  45. DIMENHYDRINATE. [Concomitant]
     Active Substance: DIMENHYDRINATE
     Route: 042
     Dates: start: 20040831
  46. LORAZEPAM. [Concomitant]
     Active Substance: LORAZEPAM
     Indication: PRODUCT USED FOR UNKNOWN INDICATION
     Route: 048
     Dates: start: 20040831
  47. MYCOSTATIN [Concomitant]
     Active Substance: NYSTATIN
     Indication: PRODUCT USED FOR UNKNOWN INDICATION
     Route: 048
     Dates: start: 20040828, end: 20041229
  48. SEPTRA [Concomitant]
     Active Substance: SULFAMETHOXAZOLE\TRIMETHOPRIM
     Route: 048
     Dates: start: 20041213, end: 20051129
  49. DACLIZUMAB [Suspect]
     Active Substance: DACLIZUMAB
     Dosage: UNK UNK, UNKNOWN FREQ.
     Route: 042
     Dates: start: 20041206, end: 20041206
  50. METHYLPREDNISOLONE SODIUM SUCCINATE. [Suspect]
     Active Substance: METHYLPREDNISOLONE SODIUM SUCCINATE
     Indication: PRODUCT USED FOR UNKNOWN INDICATION
     Route: 065
     Dates: start: 20040901, end: 20040901
  51. MYCOPHENOLATE MOFETIL. [Suspect]
     Active Substance: MYCOPHENOLATE MOFETIL
     Route: 065
     Dates: start: 20040906, end: 20040906
  52. MYCOPHENOLATE MOFETIL. [Suspect]
     Active Substance: MYCOPHENOLATE MOFETIL
     Route: 065
     Dates: start: 20040925
  53. PREDNISONE. [Suspect]
     Active Substance: PREDNISONE
     Route: 048
     Dates: start: 20041218
  54. PREDNISONE. [Suspect]
     Active Substance: PREDNISONE
     Route: 048
     Dates: start: 20050719
  55. RISEDRONIC ACID [Concomitant]
     Active Substance: RISEDRONIC ACID
     Indication: OSTEOPOROSIS
     Dosage: UNK UNK, UNKNOWN FREQ.
     Route: 048
     Dates: start: 20040924
  56. SODIUM POLYSTYRENE SULFONATE. [Concomitant]
     Active Substance: SODIUM POLYSTYRENE SULFONATE
     Route: 048
     Dates: start: 20040920
  57. CICLOSPORIN [Suspect]
     Active Substance: CYCLOSPORINE
     Route: 065
     Dates: start: 20041109
  58. CICLOSPORIN [Suspect]
     Active Substance: CYCLOSPORINE
     Route: 065
     Dates: start: 20060112
  59. CICLOSPORIN [Suspect]
     Active Substance: CYCLOSPORINE
     Route: 065
     Dates: start: 20060303
  60. METHYLPREDNISOLONE SODIUM SUCCINATE. [Suspect]
     Active Substance: METHYLPREDNISOLONE SODIUM SUCCINATE
     Route: 065
     Dates: start: 20040831, end: 20040831
  61. METHYLPREDNISOLONE SODIUM SUCCINATE. [Suspect]
     Active Substance: METHYLPREDNISOLONE SODIUM SUCCINATE
     Route: 065
     Dates: start: 20040902, end: 20040902
  62. MYCOPHENOLATE MOFETIL. [Suspect]
     Active Substance: MYCOPHENOLATE MOFETIL
     Route: 065
     Dates: start: 20040901, end: 20040901
  63. PREDNISONE. [Suspect]
     Active Substance: PREDNISONE
     Route: 048
     Dates: start: 20040906, end: 20040906
  64. FUROSEMIDE. [Concomitant]
     Active Substance: FUROSEMIDE
     Indication: PRODUCT USED FOR UNKNOWN INDICATION
     Route: 042
     Dates: start: 20040828, end: 20040828
  65. RANITIDINE HYDROCHLORIDE. [Concomitant]
     Active Substance: RANITIDINE HYDROCHLORIDE
     Indication: PRODUCT USED FOR UNKNOWN INDICATION
     Route: 048
     Dates: start: 20040903, end: 20060302
  66. CICLOSPORIN [Suspect]
     Active Substance: CYCLOSPORINE
     Route: 065
     Dates: start: 20041203
  67. CICLOSPORIN [Suspect]
     Active Substance: CYCLOSPORINE
     Route: 065
     Dates: start: 20040903, end: 20040903
  68. CICLOSPORIN [Suspect]
     Active Substance: CYCLOSPORINE
     Route: 065
     Dates: start: 20040831, end: 20040901
  69. DACLIZUMAB [Suspect]
     Active Substance: DACLIZUMAB
     Indication: PROPHYLAXIS AGAINST TRANSPLANT REJECTION
     Route: 042
     Dates: start: 20040922, end: 20040922
  70. HYDROCORTISONE. [Suspect]
     Active Substance: HYDROCORTISONE
     Indication: PRODUCT USED FOR UNKNOWN INDICATION
     Route: 065
     Dates: start: 20041217
  71. METHYLPREDNISOLONE SODIUM SUCCINATE. [Suspect]
     Active Substance: METHYLPREDNISOLONE SODIUM SUCCINATE
     Route: 065
     Dates: start: 20040830, end: 20040830
  72. MYCOPHENOLATE MOFETIL. [Suspect]
     Active Substance: MYCOPHENOLATE MOFETIL
     Route: 065
     Dates: start: 20040905, end: 20040905
  73. MYCOPHENOLATE MOFETIL. [Suspect]
     Active Substance: MYCOPHENOLATE MOFETIL
     Route: 065
     Dates: start: 20040919
  74. MYCOPHENOLATE MOFETIL. [Suspect]
     Active Substance: MYCOPHENOLATE MOFETIL
     Route: 065
     Dates: start: 20041222, end: 20041222
  75. PREDNISONE. [Suspect]
     Active Substance: PREDNISONE
     Route: 048
     Dates: start: 20041213
  76. CLONAZEPAM. [Concomitant]
     Active Substance: CLONAZEPAM
     Indication: PRODUCT USED FOR UNKNOWN INDICATION
     Route: 048
     Dates: start: 20040829
  77. ENALAPRIL MALEATE. [Concomitant]
     Active Substance: ENALAPRIL MALEATE
     Route: 048
     Dates: start: 20050509
  78. MAGNESIUM SULFATE. [Concomitant]
     Active Substance: MAGNESIUM SULFATE
     Indication: PRODUCT USED FOR UNKNOWN INDICATION
     Route: 042
     Dates: start: 20040913
  79. SODIUM POLYSTYRENE SULFONATE. [Concomitant]
     Active Substance: SODIUM POLYSTYRENE SULFONATE
     Indication: PRODUCT USED FOR UNKNOWN INDICATION
     Route: 048
     Dates: start: 20040828
  80. TACROLIMUS. [Suspect]
     Active Substance: TACROLIMUS
     Indication: PROPHYLAXIS AGAINST TRANSPLANT REJECTION
     Dosage: UNK UNK, UNKNOWN FREQ.
     Route: 065
  81. CICLOSPORIN [Suspect]
     Active Substance: CYCLOSPORINE
     Indication: PROPHYLAXIS AGAINST TRANSPLANT REJECTION
     Route: 065
     Dates: start: 20040827, end: 20040830
  82. CICLOSPORIN [Suspect]
     Active Substance: CYCLOSPORINE
     Route: 065
     Dates: start: 20051220
  83. METHYLPREDNISOLONE SODIUM SUCCINATE. [Suspect]
     Active Substance: METHYLPREDNISOLONE SODIUM SUCCINATE
     Route: 065
     Dates: start: 20040828, end: 20040828
  84. METHYLPREDNISOLONE SODIUM SUCCINATE. [Suspect]
     Active Substance: METHYLPREDNISOLONE SODIUM SUCCINATE
     Route: 065
     Dates: start: 20040915
  85. MYCOPHENOLATE MOFETIL. [Suspect]
     Active Substance: MYCOPHENOLATE MOFETIL
     Indication: PROPHYLAXIS AGAINST TRANSPLANT REJECTION
     Route: 065
     Dates: start: 20050218
  86. MYCOPHENOLATE MOFETIL. [Suspect]
     Active Substance: MYCOPHENOLATE MOFETIL
     Route: 065
     Dates: start: 20040827, end: 20040827
  87. PREDNISONE. [Suspect]
     Active Substance: PREDNISONE
     Indication: PROPHYLAXIS AGAINST TRANSPLANT REJECTION
     Route: 048
     Dates: start: 20040904, end: 20040904
  88. PREDNISONE. [Suspect]
     Active Substance: PREDNISONE
     Route: 048
     Dates: start: 20040905, end: 20040905
  89. CYANOCOBALAMIN. [Concomitant]
     Active Substance: CYANOCOBALAMIN
     Route: 058
     Dates: start: 20041011, end: 20060302
  90. SODIUM POLYSTYRENE SULFONATE. [Concomitant]
     Active Substance: SODIUM POLYSTYRENE SULFONATE
     Route: 048
     Dates: start: 20040912
  91. SODIUM POLYSTYRENE SULFONATE. [Concomitant]
     Active Substance: SODIUM POLYSTYRENE SULFONATE
     Route: 048
     Dates: start: 20040915

REACTIONS (4)
  - Hydronephrosis [Recovered/Resolved]
  - Leukopenia [Not Recovered/Not Resolved]
  - Ureteric stenosis [Recovered/Resolved]
  - Lymphocele [Not Recovered/Not Resolved]

NARRATIVE: CASE EVENT DATE: 20041129
